FAERS Safety Report 5148013-9 (Version None)
Quarter: 2006Q4

REPORT INFORMATION
  Report Type: 
  Country: None (occurrence: None)
  Receive Date: 20061110
  Receipt Date: 20061108
  Transmission Date: 20070319
  Serious: Yes (Hospitalization)
  Sender: FDA-Public Use
  Company Number: US-GLAXOSMITHKLINE-A0626737A

PATIENT
  Age: 79 Year
  Sex: Male

DRUGS (27)
  1. COREG [Suspect]
     Indication: DRUG USE FOR UNKNOWN INDICATION
     Dosage: 3.125MG PER DAY
     Route: 048
     Dates: start: 20031017
  2. KETOPROFEN [Concomitant]
  3. LIDODERM PATCH [Concomitant]
  4. NITROSTAT [Concomitant]
  5. NITROGLYCERIN [Concomitant]
  6. NASONEX [Concomitant]
  7. ZYRTEC [Concomitant]
  8. PERCOCET [Concomitant]
  9. LISINOPRIL [Concomitant]
  10. COUMADIN [Concomitant]
  11. KLOR-CON [Concomitant]
  12. LASIX [Concomitant]
  13. NEXIUM [Concomitant]
  14. MECLIZINE [Concomitant]
  15. AVODART [Concomitant]
  16. DARIFENACIN [Concomitant]
  17. ALLOPURINOL [Concomitant]
  18. IBUPROFEN [Concomitant]
  19. HYDROXAZEPAM [Concomitant]
  20. KENALOG [Concomitant]
  21. SELENIUM SULPHIDE [Concomitant]
  22. UNKNOWN MEDICATION [Concomitant]
  23. ELIDEL [Concomitant]
     Route: 061
  24. AMOXIL [Concomitant]
  25. RAZADYNE [Concomitant]
  26. ASPIRIN [Concomitant]
  27. MULTI-VITAMIN [Concomitant]

REACTIONS (3)
  - ASTHENIA [None]
  - DEPRESSION [None]
  - DIZZINESS [None]
